FAERS Safety Report 10305777 (Version 1)
Quarter: 2014Q3

REPORT INFORMATION
  Report Type: Spontaneous
  Country: US (occurrence: None)
  Receive Date: 20140710
  Receipt Date: 20140710
  Transmission Date: 20150326
  Serious: Yes (Hospitalization)
  Sender: FDA-Public Use
  Company Number: UCM201406-000118

PATIENT
  Age: 42 Year
  Sex: Male

DRUGS (2)
  1. METRONIDAZOLE (METRONIDAZOLE) (METRONIDAZOLE) [Suspect]
     Active Substance: METRONIDAZOLE
  2. CIPROFLOXACIN (CIPROFLOXACIN) (CIPROFLAXACIN) [Concomitant]

REACTIONS (7)
  - Substance-induced psychotic disorder [None]
  - Delirium [None]
  - Agitation [None]
  - Encephalomalacia [None]
  - Neurotoxicity [None]
  - Suicidal ideation [None]
  - Hallucination [None]
